FAERS Safety Report 10371285 (Version 1)
Quarter: 2014Q3

REPORT INFORMATION
  Report Type: Spontaneous
  Country: ES (occurrence: DE)
  Receive Date: 20140808
  Receipt Date: 20140808
  Transmission Date: 20150326
  Serious: Yes (Other)
  Sender: FDA-Public Use
  Company Number: DE-FRI-1000069722

PATIENT
  Age: 76 Year
  Sex: Male

DRUGS (1)
  1. ACLIDINIUM [Suspect]
     Active Substance: ACLIDINIUM BROMIDE

REACTIONS (2)
  - Swelling [Recovered/Resolved]
  - Blister [Recovered/Resolved]
